FAERS Safety Report 5929765-4 (Version None)
Quarter: 2008Q3

REPORT INFORMATION
  Report Type: 
  Country: None (occurrence: None)
  Receive Date: 20080930
  Receipt Date: 20071128
  Transmission Date: 20090109
  Serious: Yes (Other)
  Sender: FDA-Public Use
  Company Number: 164617USA

PATIENT
  Age: 80 Year
  Sex: Female
  Weight: 61.2356 kg

DRUGS (3)
  1. ENALAPRIL MALEATE [Suspect]
     Indication: HYPERTENSION
     Dosage: 5 MG (5 MG,1 IN 1 D),ORAL
     Route: 048
     Dates: start: 20061129
  2. DILTIAZEM HCL [Concomitant]
  3. DEXAMETHASONE [Concomitant]

REACTIONS (3)
  - LEUKOPENIA [None]
  - RED BLOOD CELL COUNT DECREASED [None]
  - SCAN BONE MARROW ABNORMAL [None]
